FAERS Safety Report 4520167-4 (Version None)
Quarter: 2004Q4

REPORT INFORMATION
  Report Type: 
  Country: None (occurrence: None)
  Receive Date: 20041029
  Receipt Date: 20040719
  Transmission Date: 20050328
  Serious: Yes (Disabling)
  Sender: FDA-Public Use
  Company Number: US013490

PATIENT
  Age: 57 Year
  Sex: Female

DRUGS (8)
  1. PROVIGIL [Suspect]
     Indication: FATIGUE
     Dosage: 200 MG QD ORAL
     Route: 048
     Dates: start: 20040201, end: 20040401
  2. PROVIGIL [Suspect]
     Indication: MULTIPLE SCLEROSIS
     Dosage: 200 MG QD ORAL
     Route: 048
     Dates: start: 20040201, end: 20040401
  3. LEXAPRO [Concomitant]
  4. BACLOFEN [Concomitant]
  5. SEROQUEL [Concomitant]
  6. ALPRAZOLAM [Concomitant]
  7. GLIPIZIDE [Concomitant]
  8. GLUCOTROL [Concomitant]

REACTIONS (1)
  - OEDEMA PERIPHERAL [None]
